FAERS Safety Report 5716532-X (Version None)
Quarter: 2008Q2

REPORT INFORMATION
  Report Type: 
  Country: None (occurrence: None)
  Receive Date: 20080424
  Receipt Date: 20080415
  Transmission Date: 20081010
  Serious: Yes (Other)
  Sender: FDA-Public Use
  Company Number: US-ELI_LILLY_AND_COMPANY-US200804004672

PATIENT
  Sex: Female

DRUGS (9)
  1. BYETTA [Suspect]
     Indication: TYPE 2 DIABETES MELLITUS
     Dosage: 5 UG, 2/D
     Route: 058
     Dates: start: 20080410
  2. PRANDIN [Concomitant]
     Dosage: 1 MG, 3/D
     Dates: start: 20071106
  3. GLIMEPIRIDE [Concomitant]
     Dosage: 1 MG, EACH MORNING
  4. ARICEPT [Concomitant]
     Dosage: 10 MG, DAILY (1/D)
  5. ASPIRIN [Concomitant]
     Dosage: 81 MG, DAILY (1/D)
  6. LISINOPRIL [Concomitant]
     Dosage: 10 MG, 2/D
  7. SEROQUEL [Concomitant]
     Dosage: 25 MG, DAILY (1/D)
  8. VYTORIN [Concomitant]
     Dosage: UNK, DAILY (1/D)
  9. VITAMIN B-12 [Concomitant]
     Dosage: 100 UNK, UNKNOWN

REACTIONS (1)
  - HYPOGLYCAEMIC UNCONSCIOUSNESS [None]
